FAERS Safety Report 8891859 (Version 1)
Quarter: 2012Q4

REPORT INFORMATION
  Report Type: 
  Country: US (occurrence: US)
  Receive Date: 20121107
  Receipt Date: 20121107
  Transmission Date: 20130627
  Serious: No
  Sender: FDA-Public Use
  Company Number: US-AMGEN-USASP2011051125

PATIENT
  Age: 59 Year
  Sex: Female
  Weight: 50.79 kg

DRUGS (6)
  1. ENBREL [Suspect]
     Indication: PRODUCT USED FOR UNKNOWN INDICATION
     Dosage: 25 mg, 2 times/wk
     Route: 058
  2. PLAQUENIL                          /00072603/ [Concomitant]
     Dosage: 200 UNK, UNK
  3. VITAMIN D /00107901/ [Concomitant]
     Dosage: 1000 UNK, UNK
  4. CALCIUM [Concomitant]
     Dosage: 500 UNK, UNK
  5. FOLIC ACID [Concomitant]
     Dosage: UNK
  6. GLUCOSAMINE + CHONDROITIN          /01430901/ [Concomitant]
     Dosage: UNK

REACTIONS (1)
  - Pyrexia [Unknown]
